FAERS Safety Report 19401080 (Version 2)
Quarter: 2021Q2

REPORT INFORMATION
  Report Type: Spontaneous
  Country: US (occurrence: US)
  Receive Date: 20210611
  Receipt Date: 20210622
  Transmission Date: 20210717
  Serious: Yes (Other)
  Sender: FDA-Public Use
  Company Number: US-ACADIA PHARMACEUTICALS INC.-ACA-2021-PIM-002066

PATIENT
  Age: 81 Year
  Sex: Male

DRUGS (1)
  1. NUPLAZID [Suspect]
     Active Substance: PIMAVANSERIN TARTRATE
     Indication: PARKINSON^S DISEASE PSYCHOSIS
     Dosage: UNK
     Route: 065
     Dates: start: 2020

REACTIONS (7)
  - Tremor [Unknown]
  - Suicidal ideation [Unknown]
  - Abnormal behaviour [Unknown]
  - Insomnia [Unknown]
  - Nervousness [Unknown]
  - Restlessness [Unknown]
  - Drug intolerance [Unknown]

NARRATIVE: CASE EVENT DATE: 202105
